FAERS Safety Report 4617620-1 (Version None)
Quarter: 2005Q1

REPORT INFORMATION
  Report Type: 
  Country: None (occurrence: None)
  Receive Date: 20050324
  Receipt Date: 20031110
  Transmission Date: 20050727
  Serious: Yes (Hospitalization, Disabling, Other)
  Sender: FDA-Public Use
  Company Number: US-MERCK-0311USA00841

PATIENT
  Age: 64 Year
  Sex: Female

DRUGS (7)
  1. FOSAMAX [Suspect]
     Indication: OSTEOPOROSIS
     Route: 048
     Dates: start: 19980101, end: 20020101
  2. FOSAMAX [Suspect]
     Indication: FRACTURE
     Route: 048
     Dates: start: 19980101, end: 20020101
  3. ESTROGENS (UNSPECIFIED) [Concomitant]
     Route: 065
  4. VITAMIN D (UNSPECIFIED) [Concomitant]
     Indication: HYPOPARATHYROIDISM
     Route: 065
  5. CALCIUM (UNSPECIFIED) [Concomitant]
     Route: 065
  6. PREDNISONE [Concomitant]
     Indication: FIBROMYALGIA
     Route: 065
     Dates: start: 19900101
  7. ERGOCALCIFEROL [Concomitant]
     Route: 065

REACTIONS (7)
  - BONE DISORDER [None]
  - CREATININE URINE INCREASED [None]
  - FEMUR FRACTURE [None]
  - FRACTURE DELAYED UNION [None]
  - HIP FRACTURE [None]
  - LABORATORY TEST ABNORMAL [None]
  - RIB FRACTURE [None]
